FAERS Safety Report 5715656-0 (Version None)
Quarter: 2008Q2

REPORT INFORMATION
  Report Type: 
  Country: None (occurrence: None)
  Receive Date: 20080423
  Receipt Date: 20080423
  Transmission Date: 20081010
  Serious: Yes (Hospitalization)
  Sender: FDA-Public Use
  Company Number: None

PATIENT
  Age: 57 Year
  Sex: Male

DRUGS (1)
  1. ENALAPRIL [Suspect]
     Dosage: 10 MG EVERY DAY PO
     Route: 048
     Dates: start: 20070615, end: 20080331

REACTIONS (2)
  - ANGIOEDEMA [None]
  - DYSPHAGIA [None]
